FAERS Safety Report 9792433 (Version 1)
Quarter: 2014Q1

REPORT INFORMATION
  Report Type: Spontaneous
  Country: US (occurrence: US)
  Receive Date: 20140102
  Receipt Date: 20140102
  Transmission Date: 20141002
  Serious: No
  Sender: FDA-Public Use
  Company Number: US-BIOGENIDEC-2013BI123546

PATIENT
  Sex: Female
  Weight: 94 kg

DRUGS (12)
  1. TECFIDERA [Suspect]
     Indication: PRODUCT USED FOR UNKNOWN INDICATION
     Route: 048
  2. RAMIPRIL [Concomitant]
  3. FUROSEMIDE [Concomitant]
  4. AMANTADINE [Concomitant]
  5. SETRALINE [Concomitant]
  6. QUETIAPINE [Concomitant]
  7. TRAZODONE [Concomitant]
  8. DESMOPRESSIN [Concomitant]
  9. SIMVASTATIN [Concomitant]
  10. ASPIRIN FREE TAB [Concomitant]
  11. CETIRIZINE [Concomitant]
  12. LEVETIRACETA [Concomitant]

REACTIONS (1)
  - Tremor [Unknown]
